FAERS Safety Report 4736865-3 (Version None)
Quarter: 2005Q3

REPORT INFORMATION
  Report Type: 
  Country: None (occurrence: None)
  Receive Date: 20050808
  Receipt Date: 20050804
  Transmission Date: 20060218
  Serious: Yes (Other)
  Sender: FDA-Public Use
  Company Number: US-GLAXOSMITHKLINE-A0568953A

PATIENT
  Age: 25 Year
  Sex: Female

DRUGS (7)
  1. NAVELBINE [Suspect]
     Indication: HODGKIN'S DISEASE
     Dosage: 25MGM2 VARIABLE DOSE
     Route: 042
     Dates: start: 20050722, end: 20050723
  2. ZOFRAN [Concomitant]
  3. PHENOTHIAZINE [Concomitant]
  4. STEROID [Concomitant]
  5. NEUPOGEN [Concomitant]
  6. QUINOLONE [Concomitant]
  7. GEMCITABINE [Concomitant]

REACTIONS (2)
  - ELECTROCARDIOGRAM QT CORRECTED INTERVAL PROLONGED [None]
  - TACHYCARDIA [None]
